FAERS Safety Report 8327393-7 (Version None)
Quarter: 2012Q2

REPORT INFORMATION
  Report Type: 
  Country: None (occurrence: None)
  Receive Date: 20120502
  Receipt Date: 20120424
  Transmission Date: 20120825
  Serious: Yes (Hospitalization, Other)
  Sender: FDA-Public Use
  Company Number: US-AMGEN-USASP2012025862

PATIENT
  Age: 58 Year
  Sex: Female

DRUGS (1)
  1. ENBREL [Suspect]
     Indication: RHEUMATOID ARTHRITIS
     Dosage: 50 MG, QWK
     Dates: start: 20090101

REACTIONS (10)
  - PULMONARY EMBOLISM [None]
  - RENAL FAILURE [None]
  - MULTIPLE MYELOMA [None]
  - MEDICAL DEVICE COMPLICATION [None]
  - STAPHYLOCOCCAL INFECTION [None]
  - WOUND INFECTION STAPHYLOCOCCAL [None]
  - RHEUMATOID ARTHRITIS [None]
  - DRUG INEFFECTIVE [None]
  - OEDEMA PERIPHERAL [None]
  - FRACTURED COCCYX [None]
